FAERS Safety Report 21027554 (Version 1)
Quarter: 2022Q2

REPORT INFORMATION
  Report Type: Spontaneous
  Country: US (occurrence: US)
  Receive Date: 20220630
  Receipt Date: 20220630
  Transmission Date: 20220721
  Serious: Yes (Other)
  Sender: FDA-Public Use
  Company Number: US-PURDUE-USA-2022-0294810

PATIENT

DRUGS (2)
  1. DILAUDID [Interacting]
     Active Substance: HYDROMORPHONE HYDROCHLORIDE
     Indication: Pain
     Dosage: UNK
     Route: 048
  2. MINIPRESS [Interacting]
     Active Substance: PRAZOSIN HYDROCHLORIDE
     Indication: Post-traumatic stress disorder
     Dosage: UNKNOWN
     Route: 065

REACTIONS (11)
  - Pancreatic carcinoma [Unknown]
  - Bacteraemia [Unknown]
  - Cellulitis [Unknown]
  - Fall [Unknown]
  - Hypervolaemia [Unknown]
  - Hand deformity [Unknown]
  - Memory impairment [Unknown]
  - Oedema [Unknown]
  - Scoliosis [Unknown]
  - Anaemia [Unknown]
  - Drug interaction [Unknown]
